FAERS Safety Report 7318761-0 (Version None)
Quarter: 2011Q1

REPORT INFORMATION
  Report Type: 
  Country: None (occurrence: None)
  Receive Date: 20110228
  Receipt Date: 20100513
  Transmission Date: 20110831
  Serious: No
  Sender: FDA-Public Use
  Company Number: A0851389A

PATIENT
  Age: 50 Year
  Sex: Female

DRUGS (8)
  1. SUMATRIPTAN SUCCINATE [Suspect]
     Indication: MIGRAINE
     Dosage: 1INJ IN THE MORNING
     Route: 058
     Dates: start: 20100227, end: 20100227
  2. DIAZEPAM [Concomitant]
  3. PHENERGAN [Concomitant]
  4. BACLOFEN [Concomitant]
  5. VALTREX [Concomitant]
  6. AMITRIPTYLINE HCL [Concomitant]
  7. LUNESTA [Concomitant]
  8. TORADOL [Concomitant]

REACTIONS (3)
  - VOMITING [None]
  - DRUG INEFFECTIVE [None]
  - NAUSEA [None]
